FAERS Safety Report 6656537-8 (Version None)
Quarter: 2010Q1

REPORT INFORMATION
  Report Type: 
  Country: None (occurrence: None)
  Receive Date: 20100329
  Receipt Date: 20100322
  Transmission Date: 20100710
  Serious: Yes (Death)
  Sender: FDA-Public Use
  Company Number: US-PURDUE-USA-2010-0042545

PATIENT
  Sex: Female
  Weight: 99.773 kg

DRUGS (2)
  1. MS CONTIN [Suspect]
     Indication: PAIN
     Dosage: 60 MG, DAILY
     Route: 048
     Dates: start: 20100216, end: 20100226
  2. LYRICA [Suspect]
     Indication: FIBROMYALGIA
     Dosage: 200 MG, DAILY
     Dates: start: 20080101

REACTIONS (1)
  - COMPLETED SUICIDE [None]
